FAERS Safety Report 23318294 (Version 1)
Quarter: 2023Q4

REPORT INFORMATION
  Report Type: Report from Study
  Country: US (occurrence: US)
  Receive Date: 20231220
  Receipt Date: 20231220
  Transmission Date: 20240110
  Serious: Yes (Other)
  Sender: FDA-Public Use
  Company Number: US-ABBVIE-5547465

PATIENT
  Age: 47 Year
  Sex: Female

DRUGS (1)
  1. SKYRIZI [Suspect]
     Active Substance: RISANKIZUMAB-RZAA
     Indication: Crohn^s disease
     Route: 058
     Dates: start: 20230824

REACTIONS (3)
  - Proctectomy [Not Recovered/Not Resolved]
  - Catheter placement [Unknown]
  - Stoma creation [Not Recovered/Not Resolved]

NARRATIVE: CASE EVENT DATE: 20231201
